FAERS Safety Report 6918641-6 (Version None)
Quarter: 2010Q3

REPORT INFORMATION
  Report Type: 
  Country: None (occurrence: None)
  Receive Date: 20100811
  Receipt Date: 20100804
  Transmission Date: 20110219
  Serious: Yes (Hospitalization, Disabling, Other)
  Sender: FDA-Public Use
  Company Number: US-PFIZER INC-2005072011

PATIENT
  Sex: Female
  Weight: 54.422 kg

DRUGS (6)
  1. GEODON [Suspect]
     Indication: BIPOLAR DISORDER
     Dosage: UNK
     Route: 048
     Dates: start: 20011021, end: 20011224
  2. GEODON [Suspect]
     Indication: HALLUCINATION
     Dosage: UNK
  3. ZYPREXA [Suspect]
     Dosage: UNK
     Route: 065
  4. CELEXA [Concomitant]
     Dosage: 20 MG, 1X/DAY
     Route: 048
  5. DEPAKOTE [Concomitant]
     Dosage: 500 MG PM, 250 MG AM
     Route: 048
  6. COGENTIN [Concomitant]
     Dosage: 2 MG, 1X/DAY

REACTIONS (31)
  - ACIDOSIS [None]
  - ARRHYTHMIA [None]
  - BACTERAEMIA [None]
  - BLOOD CREATINE PHOSPHOKINASE INCREASED [None]
  - BLOOD CREATINE PHOSPHOKINASE MB INCREASED [None]
  - BRADYPHRENIA [None]
  - BRAIN INJURY [None]
  - CARDIAC ARREST [None]
  - COGNITIVE DISORDER [None]
  - COMA [None]
  - DISABILITY [None]
  - DRUG LEVEL INCREASED [None]
  - DYSPHAGIA [None]
  - FEELING ABNORMAL [None]
  - FLAT AFFECT [None]
  - HYPOXIA [None]
  - HYPOXIC-ISCHAEMIC ENCEPHALOPATHY [None]
  - INSOMNIA [None]
  - LONG QT SYNDROME [None]
  - LOSS OF CONSCIOUSNESS [None]
  - MEMORY IMPAIRMENT [None]
  - MYOGLOBIN BLOOD INCREASED [None]
  - NERVOUSNESS [None]
  - NIGHTMARE [None]
  - PNEUMONIA [None]
  - RESPIRATORY ARREST [None]
  - RHABDOMYOLYSIS [None]
  - SINUS BRADYCARDIA [None]
  - STARING [None]
  - TRACHEOSTOMY [None]
  - WEIGHT INCREASED [None]
